FAERS Safety Report 24147445 (Version 1)
Quarter: 2024Q3

REPORT INFORMATION
  Report Type: Other
  Country: US (occurrence: TN)
  Receive Date: 20240729
  Receipt Date: 20240729
  Transmission Date: 20241017
  Serious: Yes (Hospitalization)
  Sender: SAPTALIS PHARMACEUTICALS
  Company Number: TN-Saptalis Pharmaceuticals LLC-2159718

PATIENT
  Age: 10 Year
  Sex: Female

DRUGS (3)
  1. LIKMEZ [Suspect]
     Active Substance: METRONIDAZOLE
     Route: 042
  2. VANCOMYCIN HYDROCHLORIDE [Concomitant]
     Active Substance: VANCOMYCIN HYDROCHLORIDE
  3. CEFOTAXIME [Concomitant]
     Active Substance: CEFOTAXIME SODIUM

REACTIONS (1)
  - Drug reaction with eosinophilia and systemic symptoms [Recovered/Resolved]
